FAERS Safety Report 5575817-0 (Version None)
Quarter: 2007Q4

REPORT INFORMATION
  Report Type: 
  Country: None (occurrence: None)
  Receive Date: 20071130
  Receipt Date: 20070731
  Transmission Date: 20080405
  Serious: No
  Sender: FDA-Public Use
  Company Number: US200708000099

PATIENT
  Age: 44 Year
  Sex: Female
  Weight: 114.3 kg

DRUGS (17)
  1. BYETTA [Suspect]
     Indication: TYPE 2 DIABETES MELLITUS
     Dosage: 5 UG, 2/D, SUBCUTANEOUS; 10 UG, 2/D, SUBCUTANEOUS; 5 UG, 2/D, SUBCUTANEOUS
     Route: 058
     Dates: start: 20060101, end: 20060101
  2. BYETTA [Suspect]
     Indication: TYPE 2 DIABETES MELLITUS
     Dosage: 5 UG, 2/D, SUBCUTANEOUS; 10 UG, 2/D, SUBCUTANEOUS; 5 UG, 2/D, SUBCUTANEOUS
     Route: 058
     Dates: start: 20060101, end: 20060101
  3. BYETTA [Suspect]
     Indication: TYPE 2 DIABETES MELLITUS
     Dosage: 5 UG, 2/D, SUBCUTANEOUS; 10 UG, 2/D, SUBCUTANEOUS; 5 UG, 2/D, SUBCUTANEOUS
     Route: 058
     Dates: start: 20060101, end: 20070601
  4. EXENATIDE 5MCG PEN, DISPOSABLE DEVICE (EXENATIDE PEN (5MCG)) PEN,DISPO [Concomitant]
  5. CYMBALTA [Concomitant]
  6. METFORMIN HCL [Concomitant]
  7. LASIX [Concomitant]
  8. LIPITOR [Concomitant]
  9. SINGULAIR [Concomitant]
  10. ADVAIR DISKUS 100/50 [Concomitant]
  11. FLONASE (FLUTICASONE PROPIONATE) INHALER [Concomitant]
  12. ALBUTEROL (SALBUTAMOL) INHALER [Concomitant]
  13. CARDIZEM CD [Concomitant]
  14. NEXIUM [Concomitant]
  15. KLONOPIN [Concomitant]
  16. SEROQUEL [Concomitant]
  17. TRAZODONE HCL [Concomitant]

REACTIONS (6)
  - BLOOD POTASSIUM ABNORMAL [None]
  - DYSPNOEA [None]
  - FOOD AVERSION [None]
  - NAUSEA [None]
  - OEDEMA PERIPHERAL [None]
  - VOMITING [None]
